FAERS Safety Report 17444388 (Version 1)
Quarter: 2020Q1

REPORT INFORMATION
  Report Type: Spontaneous
  Country: US (occurrence: US)
  Receive Date: 20200206
  Receipt Date: 20200206
  Transmission Date: 20200409
  Serious: Yes (Hospitalization)
  Sender: FDA-Public Use
  Company Number: None

PATIENT
  Age: 66 Year
  Sex: Male
  Weight: 66.2 kg

DRUGS (6)
  1. AMLODIPINE [Concomitant]
     Active Substance: AMLODIPINE BESYLATE
  2. NEXIUM [Concomitant]
     Active Substance: ESOMEPRAZOLE MAGNESIUM
  3. TYLENOL [Concomitant]
     Active Substance: ACETAMINOPHEN
  4. NEXAVAR [Suspect]
     Active Substance: SORAFENIB
     Dates: end: 20200105
  5. SITAGLIPTIN/METFORMIN (COMBINED TABLET) [Concomitant]
  6. GLICLAZIDE [Concomitant]
     Active Substance: GLICLAZIDE

REACTIONS (6)
  - Influenza like illness [None]
  - Hypophagia [None]
  - Peritonitis bacterial [None]
  - Abdominal distension [None]
  - Abdominal tenderness [None]
  - Weight increased [None]

NARRATIVE: CASE EVENT DATE: 20200109
